FAERS Safety Report 8554834 (Version 4)
Quarter: 2013Q3

REPORT INFORMATION
  Report Type: Spontaneous
  Country: US (occurrence: US)
  Receive Date: 20120510
  Receipt Date: 20130806
  Transmission Date: 20140515
  Serious: No
  Sender: FDA-Public Use
  Company Number: US-PFIZER INC-2012109920

PATIENT
  Age: 59 Year
  Sex: Female

DRUGS (4)
  1. FLAGYL [Suspect]
     Dosage: UNK
  2. BENZYLPENICILLIN POTASSIUM [Suspect]
     Dosage: UNK
  3. STADOL [Suspect]
     Dosage: UNK
  4. ASACOL [Suspect]
     Dosage: UNK

REACTIONS (1)
  - Drug hypersensitivity [Unknown]
